FAERS Safety Report 6266960-1 (Version None)
Quarter: 2009Q3

REPORT INFORMATION
  Report Type: 
  Country: None (occurrence: None)
  Receive Date: 20090714
  Receipt Date: 20090703
  Transmission Date: 20100115
  Serious: No
  Sender: FDA-Public Use
  Company Number: JP-ROCHE-641021

PATIENT
  Sex: Male
  Weight: 6 kg

DRUGS (18)
  1. ROCEPHIN [Suspect]
     Indication: MENINGITIS BACTERIAL
     Route: 041
     Dates: start: 20090408, end: 20090422
  2. ROCEPHIN [Suspect]
     Dosage: DOSING AMOUNT REPORTED: 40MG/KG (IN THE NARRATIVE).
     Route: 041
     Dates: start: 20090508, end: 20090604
  3. MEROPEN [Concomitant]
     Dosage: ROUTE REPORTED AS:^INTRAVENOUS(NOT OTHERWISE SPECIFIED)^
     Route: 042
     Dates: start: 20090409, end: 20090416
  4. MEROPEN [Concomitant]
     Dosage: ROUTE REPORTED AS:^INTRAVENOUS(NOT OTHERWISE SPECIFIED)^
     Route: 042
     Dates: start: 20090508, end: 20090513
  5. MEROPEN [Concomitant]
     Dosage: ROUTE REPORTED AS:^INTRAVENOUS(NOT OTHERWISE SPECIFIED)^
     Route: 042
     Dates: start: 20090515, end: 20090521
  6. FAMOTIDINE [Concomitant]
     Dosage: ROUTE REPORTED AS:^INTRAVENOUS(NOT OTHERWISE SPECIFIED)^
     Route: 042
     Dates: start: 20090408, end: 20090413
  7. FAMOTIDINE [Concomitant]
     Dosage: ROUTE REPORTED AS:^INTRAVENOUS(NOT OTHERWISE SPECIFIED)^
     Route: 042
     Dates: start: 20090508, end: 20090514
  8. D-MANNITOL [Concomitant]
     Dosage: ROUTE REPORTED AS:^INTRAVENOUS(NOT OTHERWISE SPECIFIED)^
     Route: 042
     Dates: start: 20090408, end: 20090416
  9. D-MANNITOL [Concomitant]
     Dosage: ROUTE REPORTED AS:^INTRAVENOUS(NOT OTHERWISE SPECIFIED)^
     Route: 042
     Dates: start: 20090515, end: 20090518
  10. VENOGLOBULIN [Concomitant]
     Dosage: ROUTE REPORTED AS:^INTRAVENOUS(NOT OTHERWISE SPECIFIED)^
     Route: 042
     Dates: start: 20090408, end: 20090410
  11. DECADRON [Concomitant]
     Dosage: ROUTE REPORTED AS:^INTRAVENOUS(NOT OTHERWISE SPECIFIED)^
     Route: 042
     Dates: start: 20090408, end: 20090410
  12. DECADRON [Concomitant]
     Dosage: ROUTE REPORTED AS:^INTRAVENOUS(NOT OTHERWISE SPECIFIED)^
     Route: 042
     Dates: start: 20090508, end: 20090510
  13. VICCILLIN [Concomitant]
     Dosage: ROUTE REPORTED AS:^INTRAVENOUS(NOT OTHERWISE SPECIFIED)^
     Route: 042
     Dates: start: 20090408, end: 20090409
  14. CEFOTAXIME SODIUM [Concomitant]
     Dosage: ROUTE REPORTED AS:^INTRAVENOUS(NOT OTHERWISE SPECIFIED)^
     Route: 042
     Dates: start: 20090507, end: 20090508
  15. NAFAMOSTAT MESILATE [Concomitant]
     Dosage: ROUTE REPORTED AS:^INTRAVENOUS(NOT OTHERWISE SPECIFIED)^.DRUG NAME REPORTED:COAHIBITOR.
     Route: 042
     Dates: start: 20090509, end: 20090511
  16. MIDAZOLAM HCL [Concomitant]
     Dosage: ROUTE REPORTED AS:^INTRAVENOUS(NOT OTHERWISE SPECIFIED)^
     Dates: start: 20090510, end: 20090513
  17. VITAMEDIN [Concomitant]
     Dosage: ROUTE REPORTED AS:^INTRAVENOUS(NOT OTHERWISE SPECIFIED)^. DOSE REPORTED AS:0.5DF.
     Route: 042
     Dates: start: 20090512, end: 20090514
  18. FULCALIQ 1 [Concomitant]
     Dosage: ROUTE REPORTED AS:^INTRAVENOUS(NOT OTHERWISE SPECIFIED)^
     Route: 042
     Dates: start: 20090513, end: 20090522

REACTIONS (3)
  - CALCULUS URINARY [None]
  - CHOLELITHIASIS [None]
  - LIVER DISORDER [None]
